FAERS Safety Report 4949412-8 (Version None)
Quarter: 2006Q1

REPORT INFORMATION
  Report Type: 
  Country: None (occurrence: None)
  Receive Date: 20060321
  Receipt Date: 20060316
  Transmission Date: 20060701
  Serious: Yes (Life-Threatening)
  Sender: FDA-Public Use
  Company Number: GB-AVENTIS-200612638GDDC

PATIENT
  Sex: Female
  Weight: 72.5 kg

DRUGS (3)
  1. LANTUS [Suspect]
     Indication: DIABETES MELLITUS
     Route: 058
     Dates: start: 20040525
  2. NOVORAPID [Concomitant]
     Indication: DIABETES MELLITUS
     Dosage: DOSE: 4 - 6 UNITS BETWEEN MEALS
     Dates: start: 20040525
  3. OMEPRAZOLE [Concomitant]
     Route: 048
     Dates: start: 20050720

REACTIONS (1)
  - HYPOGLYCAEMIA [None]
